FAERS Safety Report 11245358 (Version 1)
Quarter: 2015Q3

REPORT INFORMATION
  Report Type: Report from Study
  Country: BR (occurrence: BR)
  Receive Date: 20150707
  Receipt Date: 20150707
  Transmission Date: 20151125
  Serious: Yes (Death, Hospitalization)
  Sender: FDA-Public Use
  Company Number: BR-ABBVIE-15K-020-1421117-00

PATIENT
  Sex: Female
  Weight: 42 kg

DRUGS (4)
  1. ALENDRONATE SODIUM. [Concomitant]
     Active Substance: ALENDRONATE SODIUM
     Indication: BONE OPERATION
     Route: 048
     Dates: start: 201502
  2. HUMIRA [Suspect]
     Active Substance: ADALIMUMAB
     Indication: JUVENILE IDIOPATHIC ARTHRITIS
     Route: 058
     Dates: start: 20140901, end: 20150616
  3. METHOTREXATE [Concomitant]
     Active Substance: METHOTREXATE
     Indication: ARTHRITIS
     Route: 048
  4. CALCIUM [Concomitant]
     Active Substance: CALCIUM
     Indication: MINERAL SUPPLEMENTATION
     Route: 048
     Dates: start: 201504

REACTIONS (6)
  - Tuberculin test positive [Unknown]
  - Pleural fibrosis [Unknown]
  - Hospitalisation [Unknown]
  - Pneumonia [Unknown]
  - Immunodeficiency [Fatal]
  - Pleural effusion [Unknown]
